FAERS Safety Report 6509544-X (Version None)
Quarter: 2009Q4

REPORT INFORMATION
  Report Type: 
  Country: None (occurrence: None)
  Receive Date: 20091222
  Receipt Date: 20091215
  Transmission Date: 20100525
  Serious: Yes (Death, Hospitalization)
  Sender: FDA-Public Use
  Company Number: JP-BAYER-200914297BYL

PATIENT
  Age: 74 Year
  Sex: Female

DRUGS (12)
  1. NEXAVAR [Suspect]
     Indication: HEPATIC NEOPLASM MALIGNANT
     Dosage: TOTAL DAILY DOSE: 800 MG  UNIT DOSE: 200 MG
     Route: 048
     Dates: start: 20091021, end: 20091103
  2. NEXAVAR [Suspect]
     Dosage: UNIT DOSE: 200 MG
     Route: 048
     Dates: start: 20091103, end: 20091111
  3. NORVASC [Concomitant]
     Dosage: UNIT DOSE: 5 MG
     Route: 048
  4. URSO 250 [Concomitant]
     Dosage: UNIT DOSE: 100 MG
     Route: 048
  5. ATELEC [Concomitant]
     Dosage: UNIT DOSE: 10 MG
     Route: 048
  6. SELBEX [Concomitant]
     Dosage: BEFORE NEXAVAR ADMINISTRATION
     Route: 048
  7. MICARDIS [Concomitant]
     Dosage: UNIT DOSE: 40 MG
     Route: 048
  8. OMEPRAL [Concomitant]
     Dosage: UNIT DOSE: 20 MG
     Route: 048
  9. BUP-4 [Concomitant]
     Dosage: UNIT DOSE: 10 MG
     Route: 048
  10. ASPIRIN [Concomitant]
     Dosage: UNIT DOSE: 100 MG
     Route: 048
  11. NOVAMIN [Concomitant]
     Indication: NAUSEA
     Dosage: UNIT DOSE: 5 MG
     Route: 048
     Dates: start: 20091023, end: 20091111
  12. NEO-MINOPHAGEN C [Concomitant]
     Route: 042
     Dates: start: 20091111

REACTIONS (4)
  - CEREBRAL INFARCTION [None]
  - HEPATIC FAILURE [None]
  - PALMAR-PLANTAR ERYTHRODYSAESTHESIA SYNDROME [None]
  - STOMATITIS [None]
